FAERS Safety Report 6979414-1 (Version None)
Quarter: 2010Q3

REPORT INFORMATION
  Report Type: 
  Country: None (occurrence: None)
  Receive Date: 20100910
  Receipt Date: 20100910
  Transmission Date: 20110219
  Serious: No
  Sender: FDA-Public Use
  Company Number: None

PATIENT

DRUGS (1)
  1. COSOPT [Suspect]

REACTIONS (3)
  - DRUG INTOLERANCE [None]
  - INTRAOCULAR PRESSURE INCREASED [None]
  - PRODUCT SUBSTITUTION ISSUE [None]
